FAERS Safety Report 7459903-6 (Version None)
Quarter: 2011Q2

REPORT INFORMATION
  Report Type: 
  Country: None (occurrence: None)
  Receive Date: 20110427
  Receipt Date: 20110415
  Transmission Date: 20111010
  Serious: Yes (Life-Threatening, Hospitalization, Other)
  Sender: FDA-Public Use
  Company Number: 2011MA001811

PATIENT
  Age: 61 Year
  Sex: Female

DRUGS (3)
  1. GABAPENTIN [Suspect]
     Indication: MUSCULOSKELETAL PAIN
     Dosage: 400 MG;QD;PO
     Route: 048
     Dates: start: 20101215, end: 20110318
  2. ACETAMINOPHEN [Concomitant]
  3. PERIOSTAT [Suspect]
     Indication: TOOTH DISORDER
     Dosage: ;PO
     Route: 048

REACTIONS (1)
  - MYOCARDIAL INFARCTION [None]
